FAERS Safety Report 7324681-8 (Version None)
Quarter: 2011Q1

REPORT INFORMATION
  Report Type: 
  Country: None (occurrence: None)
  Receive Date: 20110301
  Receipt Date: 20110217
  Transmission Date: 20110831
  Serious: Yes (Hospitalization, Other)
  Sender: FDA-Public Use
  Company Number: ZA-PFIZER INC-ZA-WYE-H17303110

PATIENT
  Age: 23 Year
  Sex: Female

DRUGS (3)
  1. GESTODENE AND ETHINYL ESTRADIOL [Suspect]
     Indication: CONTRACEPTION
     Dosage: UNK
     Route: 048
     Dates: start: 19970101, end: 19990101
  2. GESTODENE AND ETHINYL ESTRADIOL [Suspect]
     Dosage: UNK
     Route: 048
     Dates: start: 20000101, end: 20100801
  3. TRIPHASIL-21 [Suspect]
     Dosage: UNK
     Route: 048
     Dates: start: 19890101, end: 19930101

REACTIONS (23)
  - NAUSEA [None]
  - FIBROMYALGIA [None]
  - ALOPECIA [None]
  - MENORRHAGIA [None]
  - PYREXIA [None]
  - MIGRAINE [None]
  - DEPRESSION [None]
  - C-REACTIVE PROTEIN INCREASED [None]
  - URINARY TRACT INFECTION [None]
  - MYELITIS [None]
  - PARALYSIS [None]
  - WEIGHT DECREASED [None]
  - MYOSITIS [None]
  - THROMBOPHLEBITIS [None]
  - GASTROENTERITIS [None]
  - APPENDICITIS [None]
  - RAYNAUD'S PHENOMENON [None]
  - BREAST CYST [None]
  - LYMPH NODE PAIN [None]
  - PLEURISY [None]
  - VIRAL INFECTION [None]
  - LACRIMATION INCREASED [None]
  - LIBIDO DECREASED [None]
